FAERS Safety Report 5011933-X (Version None)
Quarter: 2006Q2

REPORT INFORMATION
  Report Type: 
  Country: None (occurrence: None)
  Receive Date: 20060526
  Receipt Date: 20060515
  Transmission Date: 20061013
  Serious: Yes (Congenital Anomaly)
  Sender: FDA-Public Use
  Company Number: BR-ROCHE-448020

PATIENT
  Age: 4 Year
  Sex: Female

DRUGS (1)
  1. RIVOTRIL [Suspect]
     Indication: DEPRESSION
     Dates: start: 19970615

REACTIONS (4)
  - CARDIAC DISORDER [None]
  - CONGENITAL ANOMALY [None]
  - TRANSMISSION OF DRUG VIA SEMEN [None]
  - TRISOMY 21 [None]
